FAERS Safety Report 23314155 (Version 1)
Quarter: 2023Q4

REPORT INFORMATION
  Report Type: Spontaneous
  Country: US (occurrence: US)
  Receive Date: 20231219
  Receipt Date: 20231219
  Transmission Date: 20240110
  Serious: No
  Sender: FDA-Public Use
  Company Number: US-PFIZER INC-202300441746

PATIENT
  Age: 69 Year
  Sex: Female
  Weight: 69.4 kg

DRUGS (5)
  1. TALZENNA [Suspect]
     Active Substance: TALAZOPARIB TOSYLATE
     Dosage: 1 MG; ONE AT NIGHT
     Dates: start: 20221011
  2. TALZENNA [Suspect]
     Active Substance: TALAZOPARIB TOSYLATE
     Dosage: 0.75 MG
  3. TALZENNA [Suspect]
     Active Substance: TALAZOPARIB TOSYLATE
     Dosage: 0.50 MG
     Dates: start: 20221129
  4. VERAPAMIL HCL [Suspect]
     Active Substance: VERAPAMIL HYDROCHLORIDE
     Indication: Blood pressure abnormal
     Dosage: 50 MG
     Route: 048
  5. LOVASTATIN [Suspect]
     Active Substance: LOVASTATIN
     Dosage: 20 MG

REACTIONS (9)
  - Asthenia [Unknown]
  - Muscular weakness [Unknown]
  - Dyspnoea [Unknown]
  - Hypertension [Unknown]
  - Hypoaesthesia [Unknown]
  - Gait disturbance [Unknown]
  - Electrocardiogram abnormal [Unknown]
  - Feeling jittery [Unknown]
  - Neoplasm progression [Unknown]

NARRATIVE: CASE EVENT DATE: 20231204
